FAERS Safety Report 19405832 (Version 1)
Quarter: 2021Q2

REPORT INFORMATION
  Report Type: Spontaneous
  Country: US (occurrence: US)
  Receive Date: 20210611
  Receipt Date: 20210611
  Transmission Date: 20210717
  Serious: No
  Sender: FDA-Public Use
  Company Number: US-OCULAR THERAPEUTIX-2021OCX00022

PATIENT
  Age: 71 Year
  Sex: Female

DRUGS (3)
  1. TRIMOXI [Concomitant]
  2. DEXTENZA [Suspect]
     Active Substance: DEXAMETHASONE
     Indication: PROCEDURAL PAIN
     Dosage: 0.4 ?G, ONCE INTO THE FIRST EYE (LEFT EYE)
  3. DEXTENZA [Suspect]
     Active Substance: DEXAMETHASONE
     Indication: INFLAMMATION
     Dosage: 0.4 ?G, ONCE INTO THE RIGHT LOWER LID
     Dates: start: 20210412

REACTIONS (1)
  - Lacrimation increased [Not Recovered/Not Resolved]

NARRATIVE: CASE EVENT DATE: 202104
